FAERS Safety Report 6877796-2 (Version None)
Quarter: 2010Q3

REPORT INFORMATION
  Report Type: 
  Country: None (occurrence: None)
  Receive Date: 20100727
  Receipt Date: 20100203
  Transmission Date: 20110219
  Serious: No
  Sender: FDA-Public Use
  Company Number: US-ABBOTT-10P-163-0624707-00

PATIENT
  Sex: Female
  Weight: 67.192 kg

DRUGS (6)
  1. SYNTHROID [Suspect]
     Indication: HYPOTHYROIDISM
     Dates: start: 19790101
  2. HORMONES NOS [Concomitant]
     Indication: HORMONE REPLACEMENT THERAPY
  3. PREMARIN [Concomitant]
     Indication: HORMONE REPLACEMENT THERAPY
  4. TRIAMTERENE [Concomitant]
     Indication: DIURETIC THERAPY
  5. MEDROXYPROGESTERONE [Concomitant]
     Indication: PRODUCT USED FOR UNKNOWN INDICATION
  6. KLOR-CON [Concomitant]
     Indication: ELECTROLYTE SUBSTITUTION THERAPY

REACTIONS (3)
  - DYSGEUSIA [None]
  - LIP DISCOLOURATION [None]
  - ORAL DISORDER [None]
